FAERS Safety Report 5596027-7 (Version None)
Quarter: 2008Q1

REPORT INFORMATION
  Report Type: 
  Country: None (occurrence: None)
  Receive Date: 20080118
  Receipt Date: 20080107
  Transmission Date: 20080703
  Serious: Yes (Hospitalization)
  Sender: FDA-Public Use
  Company Number: FR-ROCHE-540213

PATIENT
  Age: 77 Year
  Sex: Male

DRUGS (5)
  1. CAPECITABINE [Suspect]
     Dosage: FREQUENCY REPORTED AS EVERY DAY.  CAPECITABINE ADMINISTERED ON FIRST 14 DAYS OF EACH COURSE.
     Route: 048
     Dates: start: 20040401, end: 20040414
  2. CAPECITABINE [Suspect]
     Dosage: FREQUENCY REPORTED AS EVERY DAY
     Route: 048
     Dates: start: 20040311, end: 20040324
  3. OXALIPLATINE [Suspect]
     Dosage: FREQUENCY REPORTED AS EVERYDAY. OXALIPLATINE ADMINISTERED ON DAY ONE OF EACH COURSE.
     Route: 042
     Dates: start: 20040401, end: 20040401
  4. OXALIPLATINE [Suspect]
     Dosage: FREQUENCY REPORTED AS EVERYDAY
     Route: 042
     Dates: start: 20040311, end: 20040324
  5. LASIX [Concomitant]

REACTIONS (2)
  - ABDOMINAL PAIN UPPER [None]
  - URINARY RETENTION [None]
